FAERS Safety Report 18399948 (Version 4)
Quarter: 2022Q1

REPORT INFORMATION
  Report Type: Spontaneous
  Country: US (occurrence: US)
  Receive Date: 20201019
  Receipt Date: 20220121
  Transmission Date: 20220424
  Serious: No
  Sender: FDA-Public Use
  Company Number: US-PFIZER INC-2020252663

PATIENT
  Age: 77 Year
  Sex: Female
  Weight: 55.34 kg

DRUGS (2)
  1. IBRANCE [Suspect]
     Active Substance: PALBOCICLIB
     Indication: Breast cancer female
     Dosage: 125 MG
  2. IBRANCE [Suspect]
     Active Substance: PALBOCICLIB
     Dosage: (125 DOSE UNITS NOT SPECIFIED WITH WATER ONCE A DAY FOR 21 DAYS AND OFF SEVEN DAYS)CYCLIC

REACTIONS (2)
  - Product dose omission issue [Unknown]
  - Aphonia [Unknown]
